FAERS Safety Report 25116654 (Version 4)
Quarter: 2025Q4

REPORT INFORMATION
  Report Type: Report from Study
  Country: US (occurrence: US)
  Receive Date: 20250325
  Receipt Date: 20251202
  Transmission Date: 20260118
  Serious: No
  Sender: AVERITAS
  Company Number: US-GRUNENTHAL-2025-104371

PATIENT
  Age: 59 Year
  Sex: Male

DRUGS (3)
  1. QUTENZA [Suspect]
     Active Substance: CAPSAICIN
     Indication: Diabetic neuropathy
     Dosage: UNK
     Route: 061
     Dates: start: 20250305, end: 20250305
  2. QUTENZA [Suspect]
     Active Substance: CAPSAICIN
     Dosage: UNK
     Route: 061
     Dates: start: 20250618, end: 20250618
  3. QUTENZA [Suspect]
     Active Substance: CAPSAICIN
     Dosage: UNK UNK, ONCE
     Route: 061
     Dates: start: 20251015, end: 20251015

REACTIONS (3)
  - Burning sensation [Recovered/Resolved]
  - Application site pain [Recovered/Resolved]
  - Pain [Unknown]

NARRATIVE: CASE EVENT DATE: 20250306
